FAERS Safety Report 9323460 (Version 1)
Quarter: 2013Q2

REPORT INFORMATION
  Report Type: Spontaneous
  Country: US (occurrence: US)
  Receive Date: 20130603
  Receipt Date: 20130603
  Transmission Date: 20140414
  Serious: No
  Sender: FDA-Public Use
  Company Number: US-PFIZER INC-2013166587

PATIENT
  Age: 80 Year
  Sex: Female
  Weight: 82.54 kg

DRUGS (2)
  1. NEURONTIN [Suspect]
     Indication: NEUROPATHY PERIPHERAL
     Dosage: 300MG DAILY IN MORNING, 600MG DAILY IN AFTERNOON AND 600MG DAILY AT NIGHT, 3X/DAY
  2. LEVOXYL [Suspect]
     Indication: THYROID DISORDER
     Dosage: 0.112 MG DAILY

REACTIONS (1)
  - Anosmia [Unknown]
